FAERS Safety Report 10819101 (Version 1)
Quarter: 2015Q1

REPORT INFORMATION
  Report Type: Spontaneous
  Country: US (occurrence: None)
  Receive Date: 20150213
  Receipt Date: 20150213
  Transmission Date: 20150721
  Serious: Yes (Other)
  Sender: FDA-Public Use
  Company Number: 2015BI013668

PATIENT
  Age: 32 Year
  Sex: Female

DRUGS (3)
  1. BETASERON [Concomitant]
     Active Substance: INTERFERON BETA-1B
  2. REBIF [Concomitant]
     Active Substance: INTERFERON BETA-1A
  3. TYSABRI [Suspect]
     Active Substance: NATALIZUMAB
     Indication: MULTIPLE SCLEROSIS
     Dosage: Q2M
     Route: 042
     Dates: start: 20061204, end: 20141230

REACTIONS (5)
  - Brain stem syndrome [None]
  - Multiple sclerosis relapse [None]
  - Progressive multifocal leukoencephalopathy [None]
  - Gait disturbance [None]
  - Cerebral atrophy [None]
